FAERS Safety Report 9840504 (Version 1)
Quarter: 2013Q4

REPORT INFORMATION
  Report Type: Spontaneous
  Country: US (occurrence: None)
  Receive Date: 20131211
  Receipt Date: 20131211
  Transmission Date: 20140711
  Serious: No
  Sender: FDA-Public Use
  Company Number: ALL1-2012-03343

PATIENT
  Age: 16 Year
  Sex: Female
  Weight: 47.6 kg

DRUGS (4)
  1. INTUNIV [Suspect]
     Dates: start: 201204, end: 20120710
  2. METHYLIN (METHYLPHENIDATE HYDROCHLORIDE [Concomitant]
  3. PROZAC (FLUOXETINE HYDROCHLORIDE) [Concomitant]
  4. LOW-OGESTREL (ETHINYLESTRADIOL, LEVONORGESTREL) [Concomitant]

REACTIONS (3)
  - Syncope [None]
  - Hypotension [None]
  - Dizziness [None]
